FAERS Safety Report 15880262 (Version 1)
Quarter: 2019Q1

REPORT INFORMATION
  Report Type: Spontaneous
  Country: US (occurrence: US)
  Receive Date: 20190128
  Receipt Date: 20190128
  Transmission Date: 20190417
  Serious: Yes (Death, Life-Threatening)
  Sender: FDA-Public Use
  Company Number: None

PATIENT
  Age: 81 Year
  Sex: Female

DRUGS (1)
  1. CEPHALEXIN. [Suspect]
     Active Substance: CEPHALEXIN
     Indication: URINARY TRACT INFECTION
     Dates: start: 20181224, end: 20190112

REACTIONS (5)
  - Infection [None]
  - Ileus [None]
  - Malnutrition [None]
  - Generalised oedema [None]
  - Clostridium difficile infection [None]

NARRATIVE: CASE EVENT DATE: 20190112
